FAERS Safety Report 5753538-9 (Version None)
Quarter: 2008Q2

REPORT INFORMATION
  Report Type: 
  Country: None (occurrence: None)
  Receive Date: 20080530
  Receipt Date: 20080520
  Transmission Date: 20081010
  Serious: Yes (Death)
  Sender: FDA-Public Use
  Company Number: IT-AMGEN-UK280597

PATIENT
  Sex: Female

DRUGS (4)
  1. PANITUMUMAB [Suspect]
     Indication: COLORECTAL CANCER
     Route: 042
     Dates: start: 20071001, end: 20080123
  2. FLUOROURACIL [Concomitant]
     Dates: end: 20080123
  3. LEUCOVORIN CALCIUM [Concomitant]
     Dates: end: 20080123
  4. OXALIPLATIN [Concomitant]
     Dates: end: 20080123

REACTIONS (1)
  - DEATH [None]
